FAERS Safety Report 6971691-6 (Version None)
Quarter: 2010Q3

REPORT INFORMATION
  Report Type: 
  Country: None (occurrence: None)
  Receive Date: 20100908
  Receipt Date: 20091013
  Transmission Date: 20110219
  Serious: No
  Sender: FDA-Public Use
  Company Number: US-PFIZER INC-2009283435

PATIENT
  Sex: Male
  Weight: 83.9 kg

DRUGS (2)
  1. NARDIL [Suspect]
     Indication: DEPRESSION
     Dosage: 15 MG, 2X/DAY
     Route: 048
     Dates: start: 20010101
  2. MARPLAN [Suspect]
     Indication: DEPRESSION
     Dosage: 30 MG, 2X/DAY

REACTIONS (2)
  - DRUG INEFFECTIVE [None]
  - INSOMNIA [None]
